FAERS Safety Report 4897733-X (Version None)
Quarter: 2005Q4

REPORT INFORMATION
  Report Type: 
  Country: None (occurrence: None)
  Receive Date: 20051223
  Receipt Date: 20050906
  Transmission Date: 20060501
  Serious: No
  Sender: FDA-Public Use
  Company Number: 05P-163-0310373-00

PATIENT
  Age: 77 Year
  Sex: Female
  Weight: 49.8957 kg

DRUGS (10)
  1. HUMIRA [Suspect]
     Indication: RHEUMATOID ARTHRITIS
     Dosage: 40 MG, 1 IN 2 WK, SUBCUTANEOUS
     Route: 058
     Dates: start: 20050201, end: 20050301
  2. HUMIRA [Suspect]
     Indication: RHEUMATOID ARTHRITIS
     Dosage: 40 MG, 1 IN 2 WK, SUBCUTANEOUS
     Route: 058
     Dates: start: 20050801
  3. METHOTREXATE [Concomitant]
  4. FOLIC ACID [Concomitant]
  5. SULINDAC [Concomitant]
  6. HYDROXYCHLOROQUINE PHOSPHATE [Concomitant]
  7. LEUTOVORIN [Concomitant]
  8. NIFEDIPINE [Concomitant]
  9. ALENDRONATE SODIUM [Concomitant]
  10. VITAMINS [Concomitant]

REACTIONS (2)
  - SINUSITIS [None]
  - URINARY TRACT INFECTION [None]
